FAERS Safety Report 6582594-3 (Version None)
Quarter: 2010Q1

REPORT INFORMATION
  Report Type: 
  Country: None (occurrence: None)
  Receive Date: 20100212
  Receipt Date: 20100212
  Transmission Date: 20100710
  Serious: Yes (Life-Threatening, Hospitalization)
  Sender: FDA-Public Use
  Company Number: None

PATIENT
  Age: 67 Year
  Sex: Male
  Weight: 90.19 kg

DRUGS (1)
  1. DULOXETINE HYDROCHLORIDE [Suspect]
     Indication: ACUTE HEPATIC FAILURE
     Dosage: 30 MG EVERY DAY PO
     Route: 048
     Dates: start: 20091015, end: 20091020

REACTIONS (1)
  - ACUTE HEPATIC FAILURE [None]
